FAERS Safety Report 5599235-4 (Version None)
Quarter: 2008Q1

REPORT INFORMATION
  Report Type: 
  Country: None (occurrence: None)
  Receive Date: 20080117
  Receipt Date: 20080110
  Transmission Date: 20080703
  Serious: Yes (Hospitalization)
  Sender: FDA-Public Use
  Company Number: 2007BI022702

PATIENT
  Age: 60 Year
  Sex: Female

DRUGS (1)
  1. AVONEX [Suspect]
     Indication: MULTIPLE SCLEROSIS
     Dosage: 30 UG;QW;IM
     Route: 030
     Dates: start: 20060320, end: 20071010

REACTIONS (5)
  - CONVULSION [None]
  - MENTAL STATUS CHANGES [None]
  - MULTI-ORGAN FAILURE [None]
  - MULTIPLE SCLEROSIS RELAPSE [None]
  - PNEUMONIA [None]
